FAERS Safety Report 9416337 (Version 1)
Quarter: 2013Q3

REPORT INFORMATION
  Report Type: Spontaneous
  Country: US (occurrence: None)
  Receive Date: 20130718
  Receipt Date: 20130718
  Transmission Date: 20140515
  Serious: Yes (Hospitalization, Other)
  Sender: FDA-Public Use
  Company Number: TPA2013A05382

PATIENT
  Sex: Female

DRUGS (1)
  1. ACTOPLUS MET (PIOGLITAZONE HYDROCHLORIDE, METFORMIN HYDROCHLORIDE) [Suspect]
     Indication: DIABETES MELLITUS
     Route: 048
     Dates: start: 20130528, end: 20130614

REACTIONS (7)
  - Nausea [None]
  - Abdominal pain upper [None]
  - Dizziness [None]
  - Aphagia [None]
  - Dehydration [None]
  - Blood glucose increased [None]
  - Lactic acidosis [None]
